FAERS Safety Report 12530194 (Version 1)
Quarter: 2016Q3

REPORT INFORMATION
  Report Type: Spontaneous
  Country: US (occurrence: None)
  Receive Date: 20160705
  Receipt Date: 20160705
  Transmission Date: 20161109
  Serious: Yes (Life-Threatening, Disabling)
  Sender: FDA-Public Use
  Company Number: None

PATIENT
  Age: 23 Year
  Sex: Female
  Weight: 64.86 kg

DRUGS (2)
  1. MIRENA [Suspect]
     Active Substance: LEVONORGESTREL
  2. DOXYCYCLINE. [Concomitant]
     Active Substance: DOXYCYCLINE

REACTIONS (8)
  - Pelvic inflammatory disease [None]
  - Dizziness [None]
  - Drug ineffective [None]
  - Vomiting [None]
  - Pyrexia [None]
  - Chills [None]
  - Nausea [None]
  - Fatigue [None]
